FAERS Safety Report 21482239 (Version 1)
Quarter: 2022Q4

REPORT INFORMATION
  Report Type: Report from Study
  Country: GB (occurrence: GB)
  Receive Date: 20221020
  Receipt Date: 20221020
  Transmission Date: 20230112
  Serious: Yes (Other)
  Sender: FDA-Public Use
  Company Number: GB-ABBVIE-4168077

PATIENT
  Sex: Female

DRUGS (1)
  1. RINVOQ [Suspect]
     Active Substance: UPADACITINIB
     Indication: Rheumatoid arthritis
     Dosage: 15 MG: FORM STRENGTH
     Route: 048

REACTIONS (3)
  - Systemic lupus erythematosus [Unknown]
  - Hair texture abnormal [Unknown]
  - Alopecia [Recovering/Resolving]
